FAERS Safety Report 23318568 (Version 2)
Quarter: 2024Q3

REPORT INFORMATION
  Report Type: Report from Study
  Country: DE (occurrence: DE)
  Receive Date: 20231220
  Receipt Date: 20240911
  Transmission Date: 20241016
  Serious: Yes (Death, Life-Threatening, Hospitalization)
  Sender: JOHNSON AND JOHNSON
  Company Number: DE-JNJFOC-20231182422

PATIENT
  Age: 69 Year
  Sex: Male
  Weight: 106.4 kg

DRUGS (10)
  1. DARATUMUMAB [Suspect]
     Active Substance: DARATUMUMAB
     Indication: Plasma cell myeloma
     Dosage: TOTAL DOSE PREPARED: 850 MG; VOLUME ADMINISTERED: 500 ML
     Route: 042
     Dates: start: 20231114, end: 20231114
  2. AMLODIPINE [Concomitant]
     Active Substance: AMLODIPINE BESYLATE
     Indication: Hypertension
     Route: 048
  3. BISOPROLOL [Concomitant]
     Active Substance: BISOPROLOL\BISOPROLOL FUMARATE
     Indication: Hypertension
     Route: 048
  4. CITALEX [Concomitant]
     Indication: Product used for unknown indication
     Route: 048
  5. PANTOPRAZOLE [Concomitant]
     Active Substance: PANTOPRAZOLE
     Indication: Gastritis erosive
     Route: 048
  6. SODIUM CHLORIDE [Concomitant]
     Active Substance: SODIUM CHLORIDE
     Indication: Product used for unknown indication
     Route: 055
     Dates: start: 20231110
  7. MUCOCLEAR [SODIUM CHLORIDE] [Concomitant]
     Indication: Product used for unknown indication
     Route: 055
     Dates: start: 20231111
  8. CHOLECALCIFEROL [Concomitant]
     Active Substance: CHOLECALCIFEROL
     Indication: Product used for unknown indication
     Route: 048
     Dates: start: 20121110
  9. ALLOPURINOL [Concomitant]
     Active Substance: ALLOPURINOL
     Indication: Hyperuricaemia
     Route: 048
     Dates: start: 20231114
  10. LEVOSIMENDAN [Concomitant]
     Active Substance: LEVOSIMENDAN
     Indication: Product used for unknown indication
     Route: 065
     Dates: start: 20231115, end: 20231120

REACTIONS (1)
  - Staphylococcal sepsis [Fatal]

NARRATIVE: CASE EVENT DATE: 20231115
